FAERS Safety Report 15795135 (Version 1)
Quarter: 2019Q1

REPORT INFORMATION
  Report Type: Spontaneous
  Country: US (occurrence: US)
  Receive Date: 20190107
  Receipt Date: 20190107
  Transmission Date: 20190417
  Serious: Yes (Other)
  Sender: FDA-Public Use
  Company Number: None

PATIENT
  Age: 67 Year
  Sex: Male
  Weight: 108 kg

DRUGS (3)
  1. LOSARTAN POTASSIUM. [Suspect]
     Active Substance: LOSARTAN POTASSIUM
     Indication: BLOOD PRESSURE MEASUREMENT
     Dosage: ?          QUANTITY:1 TABLET(S);?
     Route: 048
     Dates: start: 20180415, end: 20190104
  2. ALEVE [Concomitant]
     Active Substance: NAPROXEN SODIUM
  3. EXCEDRIN [Concomitant]
     Active Substance: ACETAMINOPHEN\ASPIRIN\CAFFEINE

REACTIONS (3)
  - Diarrhoea [None]
  - Abdominal pain upper [None]
  - Colitis [None]

NARRATIVE: CASE EVENT DATE: 20180613
